FAERS Safety Report 5061491-9 (Version None)
Quarter: 2006Q3

REPORT INFORMATION
  Report Type: 
  Country: None (occurrence: None)
  Receive Date: 20060703
  Receipt Date: 20060420
  Transmission Date: 20061208
  Serious: No
  Sender: FDA-Public Use
  Company Number: 2006PV012416

PATIENT
  Age: 12 Year
  Sex: Male
  Weight: 81.6475 kg

DRUGS (3)
  1. SYMLIN [Suspect]
     Indication: DIABETES MELLITUS INSULIN-DEPENDENT
     Dosage: SEE IMAGE
     Route: 058
     Dates: start: 20060101, end: 20060101
  2. SYMLIN [Suspect]
     Indication: DIABETES MELLITUS INSULIN-DEPENDENT
     Dosage: SEE IMAGE
     Route: 058
     Dates: start: 20060420
  3. HUMALOG [Concomitant]

REACTIONS (2)
  - CONSTIPATION [None]
  - WEIGHT DECREASED [None]
